FAERS Safety Report 14387742 (Version 2)
Quarter: 2020Q3

REPORT INFORMATION
  Report Type: Spontaneous
  Country: US (occurrence: US)
  Receive Date: 20180115
  Receipt Date: 20200929
  Transmission Date: 20201102
  Serious: Yes (Other)
  Sender: FDA-Public Use
  Company Number: US-SA-2017SA186872

PATIENT

DRUGS (14)
  1. SOMA [Concomitant]
     Active Substance: CARISOPRODOL
     Dosage: UNK UNK,UNK
     Route: 065
     Dates: start: 201012, end: 201507
  2. SOMA [Concomitant]
     Active Substance: CARISOPRODOL
     Dosage: UNK UNK,UNK
     Route: 065
     Dates: start: 2015
  3. ARIMIDEX [Concomitant]
     Active Substance: ANASTROZOLE
     Dosage: UNK UNK,UNK
     Route: 065
     Dates: start: 201507, end: 201507
  4. ARIMIDEX [Concomitant]
     Active Substance: ANASTROZOLE
     Dosage: UNK UNK,UNK
     Route: 065
     Dates: start: 2015
  5. XANAX [Concomitant]
     Active Substance: ALPRAZOLAM
     Dosage: UNK UNK,UNK
     Route: 065
     Dates: start: 201012, end: 201507
  6. XANAX [Concomitant]
     Active Substance: ALPRAZOLAM
     Dosage: UNK UNK,UNK
     Route: 065
     Dates: start: 2015
  7. ARIMIDEX [Concomitant]
     Active Substance: ANASTROZOLE
     Dosage: UNK UNK,UNK
     Route: 065
     Dates: start: 201012, end: 201507
  8. SOMA [Concomitant]
     Active Substance: CARISOPRODOL
     Dosage: UNK UNK,UNK
     Route: 065
     Dates: start: 201507, end: 201507
  9. TAXOTERE [Suspect]
     Active Substance: DOCETAXEL
     Indication: BREAST CANCER FEMALE
     Dosage: 133 MG,QCY
     Dates: start: 20110113, end: 20110113
  10. CYTOXAN [Concomitant]
     Active Substance: CYCLOPHOSPHAMIDE
     Dosage: 895 MG,QCY
  11. TAXOTERE [Suspect]
     Active Substance: DOCETAXEL
     Dosage: 133 MG,QCY
     Dates: start: 20110428, end: 20110428
  12. GABAPENTIN. [Concomitant]
     Active Substance: GABAPENTIN
     Dosage: UNK UNK,UNK
     Route: 065
     Dates: start: 2014
  13. ADRIAMYCIN [Concomitant]
     Active Substance: DOXORUBICIN HYDROCHLORIDE
     Dosage: 90 MG,QCY
  14. XANAX [Concomitant]
     Active Substance: ALPRAZOLAM
     Dosage: UNK UNK,UNK
     Route: 065
     Dates: start: 201507, end: 201507

REACTIONS (2)
  - Psychological trauma [Unknown]
  - Alopecia [Not Recovered/Not Resolved]

NARRATIVE: CASE EVENT DATE: 201106
